FAERS Safety Report 7081339-0 (Version None)
Quarter: 2010Q4

REPORT INFORMATION
  Report Type: 
  Country: None (occurrence: None)
  Receive Date: 20101103
  Receipt Date: 20101021
  Transmission Date: 20110411
  Serious: Yes (Hospitalization, Other)
  Sender: FDA-Public Use
  Company Number: PHHY2010BR70492

PATIENT
  Sex: Male

DRUGS (3)
  1. DIOVAN HCT [Suspect]
     Indication: HYPERTENSION
     Dosage: 320/ 12,5MG ONCE A DAY.
     Route: 048
  2. ATENSINA [Concomitant]
     Indication: HYPERTENSION
     Dosage: 0.1MG 1 TABLET
     Route: 048
  3. OMEPRAZOLE [Concomitant]
     Indication: ABDOMINAL DISCOMFORT
     Dosage: 40 MG 1 TABLET A DAY
     Route: 048

REACTIONS (2)
  - EMBOLISM ARTERIAL [None]
  - PULMONARY EMBOLISM [None]
